FAERS Safety Report 6853543-5 (Version None)
Quarter: 2010Q3

REPORT INFORMATION
  Report Type: 
  Country: None (occurrence: None)
  Receive Date: 20100717
  Receipt Date: 20071207
  Transmission Date: 20110219
  Serious: No
  Sender: FDA-Public Use
  Company Number: US-PFIZER INC-2007105608

PATIENT
  Sex: Male
  Weight: 73.5 kg

DRUGS (8)
  1. CHANTIX [Suspect]
     Indication: SMOKING CESSATION THERAPY
     Dates: start: 20071205
  2. TOPROL-XL [Concomitant]
  3. KLONOPIN [Concomitant]
  4. ACETYLSALICYLIC ACID [Concomitant]
  5. HYDROCODONE [Concomitant]
  6. PLAVIX [Concomitant]
  7. SOMA [Concomitant]
  8. AMBIEN [Concomitant]

REACTIONS (1)
  - DRUG INEFFECTIVE [None]
